FAERS Safety Report 8786307 (Version 1)
Quarter: 2012Q4

REPORT INFORMATION
  Report Type: 
  Country: US (occurrence: US)
  Receive Date: 20120914
  Receipt Date: 20120914
  Transmission Date: 20130627
  Serious: Yes (Hospitalization)
  Sender: FDA-Public Use
  Company Number: US-ROCHE-1116601

PATIENT
  Sex: Female

DRUGS (10)
  1. TARCEVA [Suspect]
     Indication: BREAST CANCER FEMALE
     Route: 065
  2. AVASTIN [Suspect]
     Indication: PRODUCT USED FOR UNKNOWN INDICATION
     Route: 065
  3. XELODA [Suspect]
     Indication: PRODUCT USED FOR UNKNOWN INDICATION
     Route: 065
  4. ADRIAMYCIN [Concomitant]
  5. CYCLOPHOSPHAMIDE [Concomitant]
  6. ABRAXANE [Concomitant]
  7. GEMZAR [Concomitant]
  8. AROMATASE INHIBITOR [Concomitant]
  9. TAXANE NOS [Concomitant]
  10. FASLODEX [Concomitant]

REACTIONS (6)
  - Disease progression [Unknown]
  - Pleural effusion [Unknown]
  - Metastases to liver [Unknown]
  - Pleurodesis [Unknown]
  - Dyspnoea [Unknown]
  - Metastases to lung [Unknown]
